FAERS Safety Report 25476693 (Version 1)
Quarter: 2025Q2

REPORT INFORMATION
  Report Type: Spontaneous
  Country: DE (occurrence: DE)
  Receive Date: 20250625
  Receipt Date: 20250625
  Transmission Date: 20250716
  Serious: Yes (Other)
  Sender: JOHNSON AND JOHNSON
  Company Number: None

PATIENT
  Age: 25 Year
  Sex: Male
  Weight: 75 kg

DRUGS (4)
  1. PALIPERIDONE PALMITATE [Suspect]
     Active Substance: PALIPERIDONE PALMITATE
     Indication: Schizophrenia
     Route: 030
     Dates: start: 20240801, end: 20250401
  2. PALIPERIDONE PALMITATE [Suspect]
     Active Substance: PALIPERIDONE PALMITATE
  3. PALIPERIDONE PALMITATE [Suspect]
     Active Substance: PALIPERIDONE PALMITATE
  4. OLANZAPINE [Suspect]
     Active Substance: OLANZAPINE
     Indication: Schizophrenia
     Route: 048
     Dates: start: 20240701, end: 20250301

REACTIONS (32)
  - Erectile dysfunction [Recovering/Resolving]
  - Shock [Recovered/Resolved]
  - Dependence [Unknown]
  - Dementia [Recovered/Resolved]
  - Suicidal ideation [Unknown]
  - Poisoning [Recovering/Resolving]
  - Constipation [Recovering/Resolving]
  - Malaise [Recovered/Resolved]
  - Vomiting [Recovered/Resolved]
  - Language disorder [Recovering/Resolving]
  - Disturbance in attention [Not Recovered/Not Resolved]
  - Weight increased [Recovered/Resolved with Sequelae]
  - Skin laceration [Recovering/Resolving]
  - Abdominal distension [Not Recovered/Not Resolved]
  - Agitation [Recovered/Resolved]
  - Salivary hypersecretion [Recovering/Resolving]
  - Urinary tract infection [Recovered/Resolved]
  - Movement disorder [Recovering/Resolving]
  - Visual impairment [Recovering/Resolving]
  - Polydipsia [Recovering/Resolving]
  - Staring [Recovering/Resolving]
  - Exercise tolerance decreased [Not Recovered/Not Resolved]
  - Feeling abnormal [Recovering/Resolving]
  - Pain [Not Recovered/Not Resolved]
  - Thinking abnormal [Not Recovered/Not Resolved]
  - Thinking abnormal [Not Recovered/Not Resolved]
  - Hypersomnia [Recovered/Resolved]
  - Sluggishness [Not Recovered/Not Resolved]
  - Dyspnoea [Recovering/Resolving]
  - Somnolence [Recovered/Resolved]
  - Hypersensitivity [Recovering/Resolving]
  - Drug ineffective [Unknown]
